FAERS Safety Report 4425375-9 (Version None)
Quarter: 2004Q3

REPORT INFORMATION
  Report Type: 
  Country: None (occurrence: None)
  Receive Date: 20040813
  Receipt Date: 20040803
  Transmission Date: 20050211
  Serious: Yes (Life-Threatening)
  Sender: FDA-Public Use
  Company Number: JPKYO-S-20040028

PATIENT
  Age: 82 Year
  Sex: Male

DRUGS (9)
  1. VINORELBINE TARTRATE [Suspect]
     Indication: NON-SMALL CELL LUNG CANCER
     Dates: start: 20040701, end: 20040701
  2. NEDAPLATIN [Suspect]
  3. SOLU-MEDROL [Concomitant]
     Dates: start: 20040701, end: 20040701
  4. PRIMPERAN INJ [Concomitant]
     Dates: start: 20040701, end: 20040701
  5. ZOFRAN [Concomitant]
     Dates: start: 20040701, end: 20040701
  6. CLARITHROMYCIN [Concomitant]
  7. MUCOSOLVAN [Concomitant]
     Dates: start: 20040628, end: 20040702
  8. MAGNESIUM [Concomitant]
     Dates: start: 20040707, end: 20040707
  9. PANTOL [Concomitant]
     Dates: start: 20040707, end: 20040713

REACTIONS (4)
  - ANOREXIA [None]
  - BLOOD SODIUM ABNORMAL [None]
  - INAPPROPRIATE ANTIDIURETIC HORMONE SECRETION [None]
  - NAUSEA [None]
